FAERS Safety Report 20044454 (Version 1)
Quarter: 2021Q4

REPORT INFORMATION
  Report Type: Spontaneous
  Country: NL (occurrence: NL)
  Receive Date: 20211108
  Receipt Date: 20211108
  Transmission Date: 20220303
  Serious: Yes (Hospitalization)
  Sender: FDA-Public Use
  Company Number: NL-NOVARTISPH-NVSC2021NL190366

PATIENT
  Age: 64 Year
  Sex: Male
  Weight: 66 kg

DRUGS (4)
  1. TACROLIMUS [Suspect]
     Active Substance: TACROLIMUS
     Indication: Renal transplant
     Dosage: 6 MG (0.5 DAY)
     Route: 048
     Dates: start: 20210401
  2. PREDNISONE [Concomitant]
     Active Substance: PREDNISONE
     Indication: Immunosuppressant drug therapy
     Dosage: 5 MG, QD (TOTAL DAILY DOSE)
     Route: 048
     Dates: start: 20160624, end: 20210302
  3. PREDNISONE [Concomitant]
     Active Substance: PREDNISONE
     Dosage: 20 MG, QD (TOTAL DAILY DOSE)
     Route: 048
     Dates: start: 20210303, end: 20210315
  4. PREDNISONE [Concomitant]
     Active Substance: PREDNISONE
     Dosage: 10 MG, QD (TOTAL DAILY DOSE)
     Route: 048
     Dates: start: 20210316

REACTIONS (2)
  - Hypersensitivity [Not Recovered/Not Resolved]
  - Pyrexia [Not Recovered/Not Resolved]

NARRATIVE: CASE EVENT DATE: 20210807
